FAERS Safety Report 7433020-3 (Version None)
Quarter: 2011Q2

REPORT INFORMATION
  Report Type: 
  Country: None (occurrence: None)
  Receive Date: 20110422
  Receipt Date: 20110418
  Transmission Date: 20111010
  Serious: Yes (Death, Hospitalization)
  Sender: FDA-Public Use
  Company Number: ZW-ABBOTT-11P-190-0710807-00

PATIENT
  Age: 60 Year
  Sex: Female
  Weight: 49 kg

DRUGS (3)
  1. ALUVIA TABLETS [Suspect]
     Indication: HIV INFECTION
     Route: 048
     Dates: start: 20101206
  2. COTRIM [Concomitant]
     Indication: PRODUCT USED FOR UNKNOWN INDICATION
     Dates: start: 20090224, end: 20110410
  3. RALTEGRAVIR [Concomitant]
     Indication: HIV INFECTION
     Dates: start: 20101206

REACTIONS (4)
  - ANAEMIA OF CHRONIC DISEASE [None]
  - CACHEXIA [None]
  - JAUNDICE [None]
  - RENAL FAILURE [None]
